FAERS Safety Report 24803460 (Version 1)
Quarter: 2025Q1

REPORT INFORMATION
  Report Type: Report from Study
  Country: GB (occurrence: GB)
  Receive Date: 20250103
  Receipt Date: 20250103
  Transmission Date: 20250409
  Serious: Yes (Other)
  Sender: AMGEN
  Company Number: GB-AMGEN-GBRSL2024255479

PATIENT
  Age: 35 Year
  Sex: Female

DRUGS (2)
  1. USTEKINUMAB [Suspect]
     Active Substance: USTEKINUMAB
     Indication: Crohn^s disease
     Route: 065
     Dates: start: 202411
  2. PREDNISOLONE [Concomitant]
     Active Substance: PREDNISOLONE
     Indication: Influenza like illness
     Route: 065

REACTIONS (7)
  - Influenza like illness [Unknown]
  - Dizziness [Unknown]
  - Arthralgia [Unknown]
  - Malaise [Unknown]
  - Anxiety [Unknown]
  - Nausea [Unknown]
  - Vomiting [Unknown]

NARRATIVE: CASE EVENT DATE: 20241101
